FAERS Safety Report 5721606-3 (Version None)
Quarter: 2008Q2

REPORT INFORMATION
  Report Type: 
  Country: None (occurrence: None)
  Receive Date: 20080429
  Receipt Date: 20070425
  Transmission Date: 20081010
  Serious: No
  Sender: FDA-Public Use
  Company Number: US-ASTRAZENECA-2003UW15368

PATIENT
  Age: 79 Year
  Sex: Female
  Weight: 55.5 kg

DRUGS (9)
  1. NEXIUM [Suspect]
     Indication: GASTROOESOPHAGEAL REFLUX DISEASE
     Route: 048
     Dates: start: 20031101
  2. NEXIUM [Suspect]
     Indication: OESOPHAGITIS
     Route: 048
     Dates: start: 20031101
  3. LANOXIN [Concomitant]
  4. VITAMIN CAP [Concomitant]
  5. VITAMIN B-12 [Concomitant]
  6. VITAMIN E [Concomitant]
  7. CALCIUM CARBONATE [Concomitant]
  8. ASPIRIN [Concomitant]
  9. HYDROCHLOROTHIAZIDE [Concomitant]

REACTIONS (5)
  - DEPRESSION [None]
  - DRUG EFFECT DECREASED [None]
  - EXTRASYSTOLES [None]
  - HEADACHE [None]
  - LETHARGY [None]
